FAERS Safety Report 8086023-2 (Version None)
Quarter: 2012Q1

REPORT INFORMATION
  Report Type: 
  Country: None (occurrence: None)
  Receive Date: 20120128
  Receipt Date: 20110608
  Transmission Date: 20120608
  Serious: No
  Sender: FDA-Public Use
  Company Number: US-ABBOTT-11P-163-0731414-00

PATIENT
  Sex: Female
  Weight: 104.42 kg

DRUGS (7)
  1. FLUOXETINE [Concomitant]
     Indication: PRODUCT USED FOR UNKNOWN INDICATION
  2. MULTI-VITAMINS [Concomitant]
     Indication: PRODUCT USED FOR UNKNOWN INDICATION
  3. UNKNOWN FIBER MEDICATION [Concomitant]
     Indication: PRODUCT USED FOR UNKNOWN INDICATION
  4. VITAMIN D [Concomitant]
     Indication: PRODUCT USED FOR UNKNOWN INDICATION
  5. OMEPRAZOLE [Concomitant]
     Indication: GASTRIC DISORDER
  6. HUMIRA [Suspect]
     Indication: PSORIASIS
     Route: 058
     Dates: start: 20090101
  7. YAZ [Concomitant]
     Indication: CONTRACEPTION

REACTIONS (5)
  - INJECTION SITE PAIN [None]
  - PSORIASIS [None]
  - PRURITUS [None]
  - DEVICE MALFUNCTION [None]
  - DRUG DOSE OMISSION [None]
